FAERS Safety Report 10532880 (Version 1)
Quarter: 2014Q4

REPORT INFORMATION
  Report Type: Report from Study
  Country: AR (occurrence: AR)
  Receive Date: 20141022
  Receipt Date: 20141022
  Transmission Date: 20150529
  Serious: Yes (Death, Hospitalization, Other)
  Sender: FDA-Public Use
  Company Number: PHHY2014AR137596

PATIENT
  Age: 67 Year
  Sex: Female

DRUGS (1)
  1. DIOVAN D [Suspect]
     Active Substance: HYDROCHLOROTHIAZIDE\VALSARTAN
     Indication: HYPERTENSION
     Dosage: 1 DF (160 UNKNOWN) QD
     Route: 048
     Dates: start: 2007

REACTIONS (4)
  - Lung cancer metastatic [Fatal]
  - Hepatic cancer metastatic [Fatal]
  - Metastases to bone marrow [Fatal]
  - Renal cancer [Fatal]

NARRATIVE: CASE EVENT DATE: 20140707
